FAERS Safety Report 24288312 (Version 6)
Quarter: 2024Q4

REPORT INFORMATION
  Report Type: Report from Study
  Country: US (occurrence: US)
  Receive Date: 20240905
  Receipt Date: 20241212
  Transmission Date: 20250114
  Serious: Yes (Other)
  Sender: SUNOVION
  Company Number: US-SUMITOMO PHARMA SWITZERLAND GMBH-2024SPA001418

PATIENT

DRUGS (1)
  1. ORGOVYX [Suspect]
     Active Substance: RELUGOLIX
     Indication: Prostate cancer
     Dosage: 120 MG, QD
     Route: 048
     Dates: start: 20240716

REACTIONS (7)
  - Diabetes mellitus [Unknown]
  - Discomfort [Unknown]
  - Fatigue [Unknown]
  - Hot flush [Recovering/Resolving]
  - Asthenia [Unknown]
  - Anaemia [Unknown]
  - Incorrect dose administered [Unknown]
